FAERS Safety Report 5891887-4 (Version None)
Quarter: 2008Q3

REPORT INFORMATION
  Report Type: 
  Country: None (occurrence: None)
  Receive Date: 20080922
  Receipt Date: 20080911
  Transmission Date: 20090109
  Serious: Yes (Other)
  Sender: FDA-Public Use
  Company Number: US-ELI_LILLY_AND_COMPANY-US200809002673

PATIENT
  Sex: Female

DRUGS (4)
  1. CYMBALTA [Suspect]
     Indication: MIGRAINE
     Dosage: 60 MG, DAILY (1/D)
     Dates: start: 20040101
  2. CYMBALTA [Suspect]
     Dosage: 60 MG, DAILY (1/D)
  3. CYMBALTA [Suspect]
     Dosage: 30 MG, DAILY (1/D)
  4. HYDROCODONE BITARTRATE [Concomitant]

REACTIONS (11)
  - AGITATION [None]
  - APHTHOUS STOMATITIS [None]
  - DIZZINESS [None]
  - DRUG WITHDRAWAL SYNDROME [None]
  - EXCORIATION [None]
  - FALL [None]
  - HYPERHIDROSIS [None]
  - IMPATIENCE [None]
  - NAUSEA [None]
  - SYNCOPE [None]
  - WEIGHT DECREASED [None]
